FAERS Safety Report 8251543-4 (Version None)
Quarter: 2012Q1

REPORT INFORMATION
  Report Type: 
  Country: None (occurrence: None)
  Receive Date: 20120321
  Receipt Date: 20110428
  Transmission Date: 20120608
  Serious: Yes (Disabling)
  Sender: FDA-Public Use
  Company Number: PHHY2011US31336

PATIENT
  Age: 64 Year
  Sex: Male

DRUGS (1)
  1. TEKTAMLO (ALISKIREN, AMLODIPINE) TABLET [Suspect]
     Indication: HYPERTENSION
     Dosage: DOSE DAILY, ORAL
     Route: 048
     Dates: start: 20110302, end: 20110425

REACTIONS (1)
  - INSOMNIA [None]
